FAERS Safety Report 13824634 (Version 1)
Quarter: 2017Q3

REPORT INFORMATION
  Report Type: Report from Study
  Country: US (occurrence: US)
  Receive Date: 20170802
  Receipt Date: 20170802
  Transmission Date: 20171127
  Serious: Yes (Hospitalization)
  Sender: FDA-Public Use
  Company Number: US-PFIZER INC-2017085893

PATIENT
  Age: 71 Year
  Sex: Male

DRUGS (3)
  1. SUTENT [Suspect]
     Active Substance: SUNITINIB MALATE
     Dosage: 37.5 MG, CYCLIC (2 WEEKS OFF/4 WEEKS ON)
     Route: 048
     Dates: start: 20170425, end: 201706
  2. SUTENT [Suspect]
     Active Substance: SUNITINIB MALATE
     Indication: GASTROINTESTINAL STROMAL TUMOUR
     Dosage: 37.5 MG, DAILY
     Route: 048
     Dates: start: 20170208, end: 20170409
  3. SUTENT [Suspect]
     Active Substance: SUNITINIB MALATE
     Dosage: 37.5 MG, CYCLIC (DAILY/ 4 WEEKS ON/ 2 WEEKS OFF)
     Route: 048
     Dates: start: 20170410

REACTIONS (17)
  - Oesophageal rupture [Unknown]
  - Glossodynia [Not Recovered/Not Resolved]
  - Asthenia [Not Recovered/Not Resolved]
  - Dyspnoea [Not Recovered/Not Resolved]
  - Dyspepsia [Unknown]
  - Fatigue [Not Recovered/Not Resolved]
  - Oral pain [Not Recovered/Not Resolved]
  - Diarrhoea [Unknown]
  - Nausea [Unknown]
  - Mucosal inflammation [Unknown]
  - Stomatitis [Not Recovered/Not Resolved]
  - Neoplasm progression [Unknown]
  - Syncope [Not Recovered/Not Resolved]
  - Internal haemorrhage [Unknown]
  - Condition aggravated [Not Recovered/Not Resolved]
  - Bronchitis [Not Recovered/Not Resolved]
  - Drug dose omission [Unknown]

NARRATIVE: CASE EVENT DATE: 20170222
